FAERS Safety Report 5827118-0 (Version None)
Quarter: 2008Q3

REPORT INFORMATION
  Report Type: 
  Country: None (occurrence: None)
  Receive Date: 20080729
  Receipt Date: 20080729
  Transmission Date: 20090109
  Serious: Yes (Hospitalization)
  Sender: FDA-Public Use
  Company Number: None

PATIENT
  Sex: Female
  Weight: 116.4 kg

DRUGS (5)
  1. DEXAMETHASONE [Suspect]
     Dosage: 154 MG
  2. DOXORUBICIN HYDROCHLORIDE [Suspect]
     Dosage: 157.5 MG
  3. METHOTREXATE [Suspect]
     Dosage: 7.5 MG
  4. PEG-L-ASPARAGINASE (K-H) [Suspect]
     Dosage: 5575 IU
  5. VINCRISTINE SULFATE [Suspect]
     Dosage: 2 MG

REACTIONS (12)
  - ACINETOBACTER INFECTION [None]
  - BACTERIA STOOL IDENTIFIED [None]
  - CARDIAC ARREST [None]
  - CARDIOMEGALY [None]
  - HYPERAMMONAEMIA [None]
  - HYPOTENSION [None]
  - NO THERAPEUTIC RESPONSE [None]
  - OXYGEN SATURATION DECREASED [None]
  - RECTAL HAEMORRHAGE [None]
  - RESPIRATORY DISTRESS [None]
  - SINUS BRADYCARDIA [None]
  - THROMBOCYTOPENIA [None]
